FAERS Safety Report 7917600-4 (Version None)
Quarter: 2011Q4

REPORT INFORMATION
  Report Type: 
  Country: None (occurrence: None)
  Receive Date: 20111116
  Receipt Date: 20111104
  Transmission Date: 20120403
  Serious: Yes (Other)
  Sender: FDA-Public Use
  Company Number: US-BAYER-2011-042790

PATIENT
  Age: 18 Year
  Sex: Female
  Weight: 47.619 kg

DRUGS (5)
  1. ZOLOFT [Concomitant]
     Indication: DEPRESSION
     Dosage: 150 MG, QD
  2. ZOLOFT [Concomitant]
     Indication: STRESS
  3. YAZ [Suspect]
     Indication: CONTRACEPTION
     Dosage: UNK
     Dates: start: 20071101, end: 20091201
  4. NORTRIPTYLINE HCL [Concomitant]
     Indication: INSOMNIA
     Dosage: 50 MG, QD
  5. TOPAMAX [Concomitant]
     Indication: MIGRAINE
     Dosage: 50 MG, BID

REACTIONS (13)
  - NAUSEA [None]
  - ANHEDONIA [None]
  - POST CHOLECYSTECTOMY SYNDROME [None]
  - INJURY [None]
  - PSYCHOLOGICAL TRAUMA [None]
  - CHOLECYSTITIS CHRONIC [None]
  - BILIARY DYSKINESIA [None]
  - GALLBLADDER DISORDER [None]
  - ABDOMINAL PAIN [None]
  - VOMITING [None]
  - WEIGHT DECREASED [None]
  - ANXIETY [None]
  - NEPHROLITHIASIS [None]
